FAERS Safety Report 7313317-8 (Version None)
Quarter: 2011Q1

REPORT INFORMATION
  Report Type: 
  Country: None (occurrence: None)
  Receive Date: 20110225
  Receipt Date: 20101025
  Transmission Date: 20110831
  Serious: No
  Sender: FDA-Public Use
  Company Number: US-MYLANLABS-2010S1019609

PATIENT
  Age: 82 Year
  Sex: Female
  Weight: 45.36 kg

DRUGS (1)
  1. METFORMIN HCL [Suspect]
     Indication: TYPE 2 DIABETES MELLITUS
     Route: 048
     Dates: start: 20100923

REACTIONS (2)
  - DRUG EFFECT DELAYED [None]
  - BLOOD GLUCOSE INCREASED [None]
